FAERS Safety Report 14372746 (Version 1)
Quarter: 2018Q1

REPORT INFORMATION
  Report Type: Spontaneous
  Country: PL (occurrence: PL)
  Receive Date: 20180110
  Receipt Date: 20180110
  Transmission Date: 20180509
  Serious: Yes (Other)
  Sender: FDA-Public Use
  Company Number: PL-MYLANLABS-2017M1083825

PATIENT
  Age: 43 Year
  Sex: Male

DRUGS (4)
  1. QUETIAPINE. [Suspect]
     Active Substance: QUETIAPINE
     Indication: SCHIZOTYPAL PERSONALITY DISORDER
     Dosage: UNK
     Route: 065
  2. RISPERIDONE. [Suspect]
     Active Substance: RISPERIDONE
     Indication: SCHIZOTYPAL PERSONALITY DISORDER
     Dosage: UNK
     Route: 065
  3. RISPERIDONE. [Suspect]
     Active Substance: RISPERIDONE
     Indication: DELUSIONAL DISORDER, UNSPECIFIED TYPE
  4. QUETIAPINE. [Suspect]
     Active Substance: QUETIAPINE
     Indication: DELUSIONAL DISORDER, UNSPECIFIED TYPE

REACTIONS (4)
  - Unmasking of previously unidentified disease [Recovering/Resolving]
  - Diabetes mellitus [Recovering/Resolving]
  - Xanthoma [Recovered/Resolved]
  - Dyslipidaemia [Recovering/Resolving]
